FAERS Safety Report 15156939 (Version 3)
Quarter: 2018Q3

REPORT INFORMATION
  Report Type: Report from Study
  Country: None (occurrence: US)
  Receive Date: 20180718
  Receipt Date: 20180917
  Transmission Date: 20181010
  Serious: Yes (Hospitalization, Other)
  Sender: FDA-Public Use
  Company Number: US-ABBVIE-18K-163-2420892-00

PATIENT
  Age: 76 Year
  Sex: Female
  Weight: 56.3 kg

DRUGS (16)
  1. HUMIRA [Suspect]
     Active Substance: ADALIMUMAB
     Route: 058
     Dates: start: 2018
  2. VITAMIN D3 [Concomitant]
     Active Substance: CHOLECALCIFEROL
     Indication: VITAMIN SUPPLEMENTATION
  3. SERTRALINE [Concomitant]
     Active Substance: SERTRALINE HYDROCHLORIDE
     Indication: DEPRESSION
  4. HYDROCHLOROTHIAZIDE. [Concomitant]
     Active Substance: HYDROCHLOROTHIAZIDE
     Indication: DIURETIC THERAPY
  5. HYDROCHLOROTHIAZIDE. [Concomitant]
     Active Substance: HYDROCHLOROTHIAZIDE
     Indication: HYPERTENSION
  6. ATORVASTATIN [Concomitant]
     Active Substance: ATORVASTATIN
     Indication: HYPERCHLORHYDRIA
  7. CARBIDOPA LEVODOPA [Concomitant]
     Active Substance: CARBIDOPA\LEVODOPA
     Indication: RESTLESS LEGS SYNDROME
  8. JANUVIA [Concomitant]
     Active Substance: SITAGLIPTIN PHOSPHATE
     Indication: DIABETES MELLITUS
  9. LORAZEPAM. [Concomitant]
     Active Substance: LORAZEPAM
     Indication: ANXIETY
  10. MELOXICAM. [Concomitant]
     Active Substance: MELOXICAM
     Indication: ARTHRITIS
  11. METHOTREXATE. [Suspect]
     Active Substance: METHOTREXATE
     Indication: RHEUMATOID ARTHRITIS
     Route: 065
     Dates: start: 2015
  12. VITAMIN B12 [Concomitant]
     Active Substance: CYANOCOBALAMIN
     Indication: VITAMIN SUPPLEMENTATION
  13. ASPIRIN. [Concomitant]
     Active Substance: ASPIRIN
     Indication: CARDIAC DISORDER
  14. HUMIRA [Suspect]
     Active Substance: ADALIMUMAB
     Indication: RHEUMATOID ARTHRITIS
     Route: 058
     Dates: start: 2012, end: 201808
  15. FOLIC ACID. [Concomitant]
     Active Substance: FOLIC ACID
     Indication: PROPHYLAXIS
  16. SIMVASTATIN. [Concomitant]
     Active Substance: SIMVASTATIN
     Indication: BLOOD CHOLESTEROL INCREASED

REACTIONS (23)
  - Tendinous contracture [Recovering/Resolving]
  - Foot deformity [Unknown]
  - Pain in extremity [Recovered/Resolved]
  - Muscle spasms [Recovered/Resolved]
  - Ligament disorder [Recovering/Resolving]
  - Cartilage atrophy [Recovered/Resolved]
  - Depression [Unknown]
  - Bone pain [Unknown]
  - Tendinous contracture [Recovering/Resolving]
  - Fall [Recovered/Resolved]
  - Osteoarthritis [Recovered/Resolved]
  - Loss of consciousness [Unknown]
  - Nerve compression [Recovering/Resolving]
  - Oropharyngeal pain [Recovering/Resolving]
  - Procedural pain [Recovered/Resolved]
  - Pharyngeal neoplasm benign [Unknown]
  - Wrist fracture [Recovered/Resolved]
  - Muscle strain [Unknown]
  - Myalgia [Unknown]
  - Ligament disorder [Recovering/Resolving]
  - Dysphagia [Recovering/Resolving]
  - Fall [Unknown]
  - Musculoskeletal chest pain [Recovered/Resolved]

NARRATIVE: CASE EVENT DATE: 2014
